FAERS Safety Report 18394620 (Version 1)
Quarter: 2020Q4

REPORT INFORMATION
  Report Type: Spontaneous
  Country: CN (occurrence: CN)
  Receive Date: 20201016
  Receipt Date: 20201016
  Transmission Date: 20210114
  Serious: Yes (Death)
  Sender: FDA-Public Use
  Company Number: CN-ASTRAZENECA-2020SF34302

PATIENT
  Age: 68 Year
  Sex: Male
  Weight: 80 kg

DRUGS (3)
  1. IMFINZI [Suspect]
     Active Substance: DURVALUMAB
     Indication: NON-SMALL CELL LUNG CANCER STAGE III
     Route: 042
     Dates: start: 20200514
  2. PLATINUM-BASED CHEMOTHERAPY [Concomitant]
     Active Substance: UNSPECIFIED INGREDIENT
  3. IMFINZI [Suspect]
     Active Substance: DURVALUMAB
     Indication: NON-SMALL CELL LUNG CANCER STAGE III
     Dosage: 800MG / CYCLE, 1 UNIT OF 500ML / 10ML, 3 UNITS OF 120MG/2.4ML.
     Route: 042
     Dates: start: 20200604

REACTIONS (3)
  - Vomiting [Unknown]
  - Nausea [Unknown]
  - Sudden death [Fatal]

NARRATIVE: CASE EVENT DATE: 20200720
